FAERS Safety Report 8117351-X (Version None)
Quarter: 2012Q1

REPORT INFORMATION
  Report Type: 
  Country: None (occurrence: None)
  Receive Date: 20120206
  Receipt Date: 20120126
  Transmission Date: 20120608
  Serious: Yes (Hospitalization)
  Sender: FDA-Public Use
  Company Number: CA-ASTRAZENECA-2012SE05603

PATIENT
  Sex: Female

DRUGS (2)
  1. CRESTOR [Suspect]
     Indication: BLOOD CHOLESTEROL ABNORMAL
     Route: 048
     Dates: start: 20111001
  2. LIPITOR [Concomitant]

REACTIONS (3)
  - CARDIAC DISORDER [None]
  - RHABDOMYOLYSIS [None]
  - RESPIRATORY FAILURE [None]
